FAERS Safety Report 5213347-6 (Version None)
Quarter: 2007Q1

REPORT INFORMATION
  Report Type: 
  Country: None (occurrence: None)
  Receive Date: 20070119
  Receipt Date: 20060614
  Transmission Date: 20070707
  Serious: No
  Sender: FDA-Public Use
  Company Number: US-GLAXOSMITHKLINE-A0608998A

PATIENT
  Age: 41 Year
  Sex: Female

DRUGS (8)
  1. ARIXTRA [Suspect]
     Indication: DEEP VEIN THROMBOSIS
     Dosage: 7.5MG PER DAY
     Route: 058
     Dates: start: 20060511
  2. ATENOLOL [Concomitant]
  3. NEURONTIN [Concomitant]
  4. SYNTHROID [Concomitant]
  5. ZETIA [Concomitant]
  6. ZOLOFT [Concomitant]
  7. AMOXICILLIN [Concomitant]
  8. DURAGESIC-100 [Concomitant]

REACTIONS (1)
  - BURNING SENSATION [None]
